FAERS Safety Report 7598859-2 (Version None)
Quarter: 2011Q3

REPORT INFORMATION
  Report Type: 
  Country: None (occurrence: None)
  Receive Date: 20110711
  Receipt Date: 20110629
  Transmission Date: 20111222
  Serious: No
  Sender: FDA-Public Use
  Company Number: US-BIOGENIDEC-2011BI023985

PATIENT
  Age: 57 Year
  Sex: Female

DRUGS (3)
  1. TYSABRI [Suspect]
     Indication: MULTIPLE SCLEROSIS
     Route: 042
     Dates: start: 20110421
  2. AVONEX [Concomitant]
     Indication: MULTIPLE SCLEROSIS
     Route: 030
     Dates: start: 20040328
  3. TYSABRI [Suspect]
     Route: 042
     Dates: start: 20091202, end: 20091202

REACTIONS (4)
  - FEELING ABNORMAL [None]
  - GAIT DISTURBANCE [None]
  - FATIGUE [None]
  - SOMNOLENCE [None]
